FAERS Safety Report 7436070-6 (Version None)
Quarter: 2011Q2

REPORT INFORMATION
  Report Type: 
  Country: None (occurrence: None)
  Receive Date: 20110425
  Receipt Date: 20110415
  Transmission Date: 20111010
  Serious: Yes (Hospitalization, Other)
  Sender: FDA-Public Use
  Company Number: US-AMGEN-USASP2011020066

PATIENT
  Sex: Male

DRUGS (1)
  1. EPOGEN [Suspect]
     Indication: RENAL FAILURE CHRONIC

REACTIONS (4)
  - VISUAL ACUITY REDUCED [None]
  - WEIGHT INCREASED [None]
  - FLUID OVERLOAD [None]
  - HAEMOGLOBIN INCREASED [None]
